FAERS Safety Report 5212656-4 (Version None)
Quarter: 2007Q1

REPORT INFORMATION
  Report Type: 
  Country: None (occurrence: None)
  Receive Date: 20070118
  Receipt Date: 20070111
  Transmission Date: 20070707
  Serious: Yes (Disabling)
  Sender: FDA-Public Use
  Company Number: GB-PFIZER INC-2007003359

PATIENT
  Age: 50 Year
  Sex: Female

DRUGS (5)
  1. CETIRIZINE HCL [Suspect]
     Indication: PRURITUS
     Route: 048
     Dates: start: 20061119, end: 20061124
  2. DERMOVATE [Concomitant]
     Indication: PRURITUS
     Dosage: FREQ:AS NECESSARY
     Route: 061
  3. FLUTICASONE PROPIONATE [Concomitant]
     Indication: ASTHMA
     Route: 048
  4. FORADIL [Concomitant]
     Indication: ASTHMA
     Route: 048
  5. LOSEC [Concomitant]
     Indication: DYSPEPSIA
     Route: 048

REACTIONS (3)
  - GINGIVITIS [None]
  - LIP HAEMORRHAGE [None]
  - MOUTH ULCERATION [None]
